FAERS Safety Report 6376671-X (Version None)
Quarter: 2009Q3

REPORT INFORMATION
  Report Type: 
  Country: None (occurrence: None)
  Receive Date: 20090922
  Receipt Date: 20090922
  Transmission Date: 20100115
  Serious: Yes (Other)
  Sender: FDA-Public Use
  Company Number: None

PATIENT
  Sex: Female
  Weight: 63.5036 kg

DRUGS (1)
  1. AMBIEN [Suspect]
     Indication: CIRCADIAN RHYTHM SLEEP DISORDER
     Dosage: ONE TABLET -AMOUNT PRESCRIBED-

REACTIONS (2)
  - DEPRESSION [None]
  - THINKING ABNORMAL [None]
